FAERS Safety Report 16145639 (Version 1)
Quarter: 2019Q2

REPORT INFORMATION
  Report Type: Spontaneous
  Country: FR (occurrence: FR)
  Receive Date: 20190402
  Receipt Date: 20190402
  Transmission Date: 20190711
  Serious: Yes (Hospitalization)
  Sender: FDA-Public Use
  Company Number: FR-AUROBINDO-AUR-APL-2019-017309

PATIENT

DRUGS (1)
  1. RAMIPRIL. [Suspect]
     Active Substance: RAMIPRIL
     Indication: PROPHYLAXIS
     Dosage: 5 MILLIGRAM, ONCE A DAY
     Route: 048
     Dates: start: 20180319, end: 20180328

REACTIONS (1)
  - Lip oedema [Recovered/Resolved]

NARRATIVE: CASE EVENT DATE: 20180328
